FAERS Safety Report 13636074 (Version 1)
Quarter: 2017Q2

REPORT INFORMATION
  Report Type: Spontaneous
  Country: GB (occurrence: GB)
  Receive Date: 20170609
  Receipt Date: 20170609
  Transmission Date: 20170830
  Serious: Yes (Death)
  Sender: FDA-Public Use
  Company Number: GB-TEVA-776023ACC

PATIENT
  Age: 50 Year
  Sex: Male

DRUGS (10)
  1. PROCYCLIDINE [Concomitant]
     Active Substance: PROCYCLIDINE
     Dosage: 5 MILLIGRAM DAILY;
     Route: 048
     Dates: start: 20140410
  2. SOLIFENACIN [Concomitant]
     Active Substance: SOLIFENACIN
     Dosage: 10 MILLIGRAM DAILY;
     Route: 048
     Dates: start: 20140728
  3. DIAZEPAM. [Concomitant]
     Active Substance: DIAZEPAM
     Indication: ANXIETY
     Dosage: 15 MILLIGRAM DAILY;
     Route: 048
     Dates: start: 20060117
  4. AMLODIPINE [Concomitant]
     Active Substance: AMLODIPINE BESYLATE
     Indication: HYPERTENSION
     Dosage: 5 MILLIGRAM DAILY;
     Route: 048
     Dates: start: 20081121
  5. HYOSCINE [Concomitant]
     Active Substance: SCOPOLAMINE
     Dosage: 900 MICROGRAM DAILY;
  6. SALBUTAMOL [Suspect]
     Active Substance: ALBUTEROL
     Route: 055
  7. OLANZAPINE. [Concomitant]
     Active Substance: OLANZAPINE
     Indication: DRUG THERAPY ENHANCEMENT
     Dosage: 10 MILLIGRAM DAILY;
     Route: 048
     Dates: start: 20160606
  8. ZAPONEX [Suspect]
     Active Substance: CLOZAPINE
     Dosage: 250MG MANE AND 150MG NOCTE
     Route: 048
     Dates: start: 20090626, end: 20170307
  9. ASPIRIN. [Concomitant]
     Active Substance: ASPIRIN
     Indication: MYOCARDIAL ISCHAEMIA
     Dosage: 75 MILLIGRAM DAILY;
     Route: 048
     Dates: start: 20051121
  10. ATORVASTATIN [Concomitant]
     Active Substance: ATORVASTATIN
     Indication: MYOCARDIAL ISCHAEMIA
     Dosage: 20 MILLIGRAM DAILY;
     Route: 048
     Dates: start: 20140214

REACTIONS (3)
  - Myocardial infarction [Fatal]
  - White blood cell count increased [Not Recovered/Not Resolved]
  - Neutrophil count increased [Not Recovered/Not Resolved]

NARRATIVE: CASE EVENT DATE: 20170118
